FAERS Safety Report 19825277 (Version 1)
Quarter: 2021Q3

REPORT INFORMATION
  Report Type: Spontaneous
  Country: FR (occurrence: FR)
  Receive Date: 20210914
  Receipt Date: 20210914
  Transmission Date: 20211014
  Serious: Yes (Death, Life-Threatening, Hospitalization)
  Sender: FDA-Public Use
  Company Number: FR-TEVA-2021-FR-1952404

PATIENT
  Age: 24 Year
  Sex: Female

DRUGS (8)
  1. PALIPERIDONE. [Suspect]
     Active Substance: PALIPERIDONE
     Indication: SCHIZOPHRENIA
     Route: 065
  2. PROPRANOLOL [Suspect]
     Active Substance: PROPRANOLOL HYDROCHLORIDE
     Indication: TACHYCARDIA
     Route: 065
  3. OXAZEPAM. [Concomitant]
     Active Substance: OXAZEPAM
     Indication: SCHIZOPHRENIA
     Route: 065
  4. NORDAZEPAM [Concomitant]
     Active Substance: NORDAZEPAM
     Indication: SCHIZOPHRENIA
     Route: 065
  5. EPINEPHRINE. [Suspect]
     Active Substance: EPINEPHRINE
     Indication: RESUSCITATION
     Route: 065
  6. TEMAZEPAM. [Concomitant]
     Active Substance: TEMAZEPAM
     Indication: SCHIZOPHRENIA
     Route: 065
  7. DIAZEPAM. [Suspect]
     Active Substance: DIAZEPAM
     Indication: SCHIZOPHRENIA
     Route: 065
  8. LOXAPINE. [Suspect]
     Active Substance: LOXAPINE
     Indication: SCHIZOPHRENIA
     Route: 065

REACTIONS (4)
  - Altered state of consciousness [Unknown]
  - Drug ineffective [Fatal]
  - Asphyxia [Unknown]
  - Orthostatic hypotension [Unknown]
